FAERS Safety Report 5231242-3 (Version None)
Quarter: 2007Q1

REPORT INFORMATION
  Report Type: 
  Country: None (occurrence: None)
  Receive Date: 20070206
  Receipt Date: 20070124
  Transmission Date: 20070707
  Serious: Yes (Other)
  Sender: FDA-Public Use
  Company Number: 2007GB00170

PATIENT

DRUGS (1)
  1. TAMOXIFEN CITRATE [Suspect]
     Dosage: BEEN ON TAMOXIFEN FOR SOME TIME
     Route: 048

REACTIONS (1)
  - MENTAL DISORDER [None]
